FAERS Safety Report 10217362 (Version 1)
Quarter: 2014Q2

REPORT INFORMATION
  Report Type: Report from Study
  Country: US (occurrence: US)
  Receive Date: 20140604
  Receipt Date: 20140604
  Transmission Date: 20141212
  Serious: Yes (Hospitalization)
  Sender: FDA-Public Use
  Company Number: US-ACTELION-A-NJ2014-099613

PATIENT
  Age: 65 Year
  Sex: Female

DRUGS (2)
  1. MACITENTAN [Suspect]
     Indication: PULMONARY ARTERIAL HYPERTENSION
     Dosage: 10 MG, UNK
     Route: 048
  2. ADCIRCA [Concomitant]

REACTIONS (8)
  - Hypoaesthesia [Unknown]
  - Hypoaesthesia oral [Unknown]
  - Candida infection [Unknown]
  - Hypotension [Unknown]
  - Dyspepsia [Unknown]
  - Throat irritation [Unknown]
  - Diarrhoea [Unknown]
  - Decreased appetite [Unknown]
